FAERS Safety Report 8943813 (Version 4)
Quarter: 2013Q2

REPORT INFORMATION
  Report Type: Report from Study
  Country: CA (occurrence: CA)
  Receive Date: 20121204
  Receipt Date: 20130506
  Transmission Date: 20140414
  Serious: Yes (Death, Other)
  Sender: FDA-Public Use
  Company Number: PHHY2012CA109961

PATIENT
  Age: 54 Year
  Sex: Male

DRUGS (2)
  1. CLOZARIL [Suspect]
     Indication: PSYCHOTIC DISORDER
     Dosage: UNK
     Dates: start: 20000126
  2. CLOZARIL [Suspect]
     Dosage: 225 MG,
     Route: 048
     Dates: start: 20090309, end: 20121127

REACTIONS (3)
  - Death [Fatal]
  - Gastrointestinal carcinoma [Unknown]
  - Lymphoma [Unknown]
